FAERS Safety Report 18591147 (Version 1)
Quarter: 2020Q4

REPORT INFORMATION
  Report Type: Spontaneous
  Country: GB (occurrence: GB)
  Receive Date: 20201208
  Receipt Date: 20201208
  Transmission Date: 20210114
  Serious: Yes (Other)
  Sender: FDA-Public Use
  Company Number: GB-PFIZER INC-2020473929

PATIENT
  Age: 77 Year
  Sex: Male
  Weight: 76 kg

DRUGS (22)
  1. PHYTOMENADIONE [Concomitant]
     Active Substance: PHYTONADIONE
     Dosage: UNK
  2. ATORVASTATIN [Concomitant]
     Active Substance: ATORVASTATIN
     Dosage: UNK
  3. PREDNISOLONE. [Concomitant]
     Active Substance: PREDNISOLONE
     Dosage: UNK
  4. PROPOFOL. [Concomitant]
     Active Substance: PROPOFOL
     Dosage: UNK
  5. OMEPRAZOLE. [Concomitant]
     Active Substance: OMEPRAZOLE
     Dosage: UNK
  6. KETOCONAZOLE. [Concomitant]
     Active Substance: KETOCONAZOLE
     Dosage: UNK
  7. CETIRIZINE DIHYDROCHLORIDE [Concomitant]
     Active Substance: CETIRIZINE HYDROCHLORIDE
     Dosage: UNK
  8. CASSIA SENNA [Concomitant]
     Active Substance: HERBALS\SENNOSIDES
     Dosage: UNK
  9. ATRACURIUM BESILATE [Concomitant]
     Active Substance: ATRACURIUM BESYLATE
     Dosage: UNK
  10. CYCLOPHOSPHAMIDE MONOHYDRATE [Concomitant]
     Active Substance: CYCLOPHOSPHAMIDE
     Dosage: UNK
  11. COTRIMOXAZOLE [Concomitant]
     Active Substance: SULFAMETHOXAZOLE\TRIMETHOPRIM
     Dosage: UNK
  12. EUMOVATE [Concomitant]
     Active Substance: CLOBETASONE BUTYRATE
     Dosage: UNK
  13. AMIODARONE [Concomitant]
     Active Substance: AMIODARONE
     Dosage: UNK
  14. DORZOLAMIDE HYDROCHLORIDE. [Concomitant]
     Active Substance: DORZOLAMIDE HYDROCHLORIDE
     Dosage: UNK
  15. BIMATOPROST/TIMOLOL [Concomitant]
     Active Substance: BIMATOPROST\TIMOLOL
     Dosage: UNK
  16. SODIUM HYDROGEN CARBONATE [Concomitant]
     Active Substance: SODIUM BICARBONATE
     Dosage: UNK
  17. TRANEXAMIC ACID. [Suspect]
     Active Substance: TRANEXAMIC ACID
     Indication: PULMONARY HAEMORRHAGE
     Dosage: 3 G, DAILY
     Route: 042
     Dates: start: 20201107, end: 20201109
  18. CETRABEN EMOLLIENT BATH ADDITIVE [Concomitant]
     Dosage: UNK
  19. FENTANYL. [Concomitant]
     Active Substance: FENTANYL
     Dosage: UNK
  20. HYDROCORTISONE SODIUM SUCCINATE [Concomitant]
     Active Substance: HYDROCORTISONE SODIUM SUCCINATE
     Dosage: UNK
  21. ADCAL D3 [Concomitant]
     Active Substance: CALCIUM CARBONATE\CHOLECALCIFEROL
     Dosage: UNK
  22. PARACETAMOL [Concomitant]
     Active Substance: ACETAMINOPHEN
     Dosage: UNK

REACTIONS (3)
  - Product prescribing error [Unknown]
  - Muscle twitching [Unknown]
  - Myoclonus [Recovering/Resolving]

NARRATIVE: CASE EVENT DATE: 20201109
